FAERS Safety Report 6361347-5 (Version None)
Quarter: 2009Q3

REPORT INFORMATION
  Report Type: 
  Country: None (occurrence: None)
  Receive Date: 20090918
  Receipt Date: 20090908
  Transmission Date: 20100115
  Serious: Yes (Other)
  Sender: FDA-Public Use
  Company Number: B0589091A

PATIENT
  Sex: Female
  Weight: 63 kg

DRUGS (9)
  1. ZANTAC [Suspect]
     Indication: GASTRIC ULCER
     Dosage: 300MG TWICE PER DAY
     Route: 048
     Dates: start: 20090701, end: 20090815
  2. COLCHICINE [Concomitant]
     Indication: GOUT
     Dosage: 500MG PER DAY
     Route: 048
  3. EPIPEN [Concomitant]
     Indication: ANAPHYLACTIC REACTION
  4. LOSARTAN [Concomitant]
     Indication: BLOOD PRESSURE
     Dosage: 25MG PER DAY
     Route: 048
  5. MODURETIC 5-50 [Concomitant]
     Indication: BLOOD PRESSURE
     Dosage: 1TAB TWICE PER DAY
     Route: 048
  6. TIMOLOL [Concomitant]
     Indication: GLAUCOMA
     Dosage: 1DROP PER DAY
  7. IBUPROFEN GEL [Concomitant]
     Indication: DRUG USE FOR UNKNOWN INDICATION
     Dosage: 10%DS TWICE PER DAY
     Route: 061
  8. DERMOVATE [Concomitant]
     Indication: RASH
     Route: 065
  9. PROPYLENE GLYCOL [Concomitant]
     Indication: PSORIASIS
     Route: 065

REACTIONS (5)
  - ABDOMINAL DISCOMFORT [None]
  - ABDOMINAL PAIN UPPER [None]
  - DRUG INEFFECTIVE [None]
  - OFF LABEL USE [None]
  - PRODUCT QUALITY ISSUE [None]
